FAERS Safety Report 6199990-9 (Version None)
Quarter: 2009Q2

REPORT INFORMATION
  Report Type: 
  Country: None (occurrence: None)
  Receive Date: 20090522
  Receipt Date: 20090511
  Transmission Date: 20091009
  Serious: Yes (Other)
  Sender: FDA-Public Use
  Company Number: GB-AVENTIS-200915105GDDC

PATIENT
  Age: 65 Year
  Sex: Male
  Weight: 65 kg

DRUGS (9)
  1. RIFAMPICIN [Suspect]
     Indication: TUBERCULOSIS
     Route: 048
     Dates: start: 20080722, end: 20090410
  2. CIPROFLOXACIN [Concomitant]
     Route: 048
  3. CITALOPRAM HYDROBROMIDE [Concomitant]
     Route: 048
  4. ETHAMBUTOL HCL [Concomitant]
     Route: 048
  5. ISONIAZID [Concomitant]
     Route: 048
  6. SALBUTAMOL [Concomitant]
     Route: 055
  7. SERETIDE [Concomitant]
     Route: 055
  8. SPIRIVA [Concomitant]
     Route: 055
  9. TRAMADOL HCL [Concomitant]
     Route: 048

REACTIONS (1)
  - PAIN [None]
